FAERS Safety Report 8997002 (Version 1)
Quarter: 2013Q1

REPORT INFORMATION
  Report Type: Spontaneous
  Country: US (occurrence: None)
  Receive Date: 20130102
  Receipt Date: 20130102
  Transmission Date: 20140127
  Serious: Yes (Other)
  Sender: FDA-Public Use
  Company Number: None

PATIENT
  Sex: Female
  Weight: 54.89 kg

DRUGS (1)
  1. SPIRIVA HANDIHALER [Suspect]

REACTIONS (5)
  - Dyspnoea [None]
  - Chronic obstructive pulmonary disease [None]
  - Visual impairment [None]
  - Urinary incontinence [None]
  - Dry mouth [None]
